FAERS Safety Report 10256229 (Version 1)
Quarter: 2014Q2

REPORT INFORMATION
  Report Type: Report from Study
  Country: US (occurrence: US)
  Receive Date: 20140624
  Receipt Date: 20140624
  Transmission Date: 20141212
  Serious: Yes (Hospitalization, Other)
  Sender: FDA-Public Use
  Company Number: US-CELGENEUS-163-21880-14062173

PATIENT
  Age: 72 Year
  Sex: Male

DRUGS (2)
  1. REVLIMID [Suspect]
     Indication: PLASMA CELL MYELOMA
     Dosage: 10 MILLIGRAM
     Route: 048
     Dates: start: 20120821
  2. VELCADE [Concomitant]
     Indication: PRODUCT USED FOR UNKNOWN INDICATION
     Dosage: 1.3 MILLIGRAM/SQ. METER
     Route: 058
     Dates: start: 20130611

REACTIONS (7)
  - Dysarthria [Unknown]
  - Confusional state [Recovering/Resolving]
  - Pancytopenia [Unknown]
  - Tremor [Recovering/Resolving]
  - Urinary incontinence [Unknown]
  - Plasma cell myeloma [Unknown]
  - Asthenia [Not Recovered/Not Resolved]
